FAERS Safety Report 9788730 (Version 2)
Quarter: 2014Q1

REPORT INFORMATION
  Report Type: Spontaneous
  Country: FR (occurrence: FR)
  Receive Date: 20131230
  Receipt Date: 20140306
  Transmission Date: 20141002
  Serious: Yes (Hospitalization, Other)
  Sender: FDA-Public Use
  Company Number: FR-BRISTOL-MYERS SQUIBB COMPANY-19932862

PATIENT
  Age: 78 Year
  Sex: Male

DRUGS (8)
  1. HYDREA CAPS 500 MG [Suspect]
     Indication: ESSENTIAL THROMBOCYTHAEMIA
     Dosage: DECEMBER 2010, INTERRUPTED?MAY 2011 TO FEBRUARY 2013
     Dates: start: 2010
  2. XAGRID [Suspect]
     Indication: ESSENTIAL THROMBOCYTHAEMIA
     Route: 048
     Dates: start: 201012, end: 201105
  3. PREVISCAN [Concomitant]
  4. KARDEGIC [Concomitant]
  5. FUROSEMIDE [Concomitant]
  6. KALEORID [Concomitant]
  7. VERCYTE [Concomitant]
  8. AMLOR [Concomitant]
     Dates: start: 201302

REACTIONS (5)
  - Pulmonary arterial hypertension [Recovering/Resolving]
  - Atrial fibrillation [Unknown]
  - Arteritis [Unknown]
  - Femoral artery aneurysm [Unknown]
  - Pulmonary fibrosis [Unknown]
